FAERS Safety Report 8045138-5 (Version None)
Quarter: 2012Q1

REPORT INFORMATION
  Report Type: 
  Country: None (occurrence: None)
  Receive Date: 20120113
  Receipt Date: 20110311
  Transmission Date: 20120608
  Serious: Yes (Other)
  Sender: FDA-Public Use
  Company Number: BG-ASTRAZENECA-2011SE13876

PATIENT
  Sex: Male

DRUGS (1)
  1. SEROQUEL XR [Suspect]
     Indication: JEALOUS DELUSION
     Route: 048
     Dates: start: 20100101, end: 20110310

REACTIONS (3)
  - PRIAPISM [None]
  - WRONG TECHNIQUE IN DRUG USAGE PROCESS [None]
  - LIBIDO INCREASED [None]
